FAERS Safety Report 4504939-8 (Version None)
Quarter: 2004Q4

REPORT INFORMATION
  Report Type: 
  Country: None (occurrence: None)
  Receive Date: 20041119
  Receipt Date: 20041110
  Transmission Date: 20050328
  Serious: Yes (Other)
  Sender: FDA-Public Use
  Company Number: US-JNJFOC-20041102825

PATIENT
  Sex: Female
  Weight: 111.59 kg

DRUGS (6)
  1. REMICADE [Suspect]
     Indication: CROHN'S DISEASE
     Route: 042
  2. IMURAN [Concomitant]
  3. DEPO-PROVERA [Concomitant]
  4. SORVIA [Concomitant]
     Indication: VITAMIN SUPPLEMENTATION
  5. PENTASA [Concomitant]
  6. NEXIUM [Concomitant]

REACTIONS (1)
  - ASTHENIA [None]
